FAERS Safety Report 23740697 (Version 4)
Quarter: 2024Q2

REPORT INFORMATION
  Report Type: Report from Study
  Country: JP (occurrence: JP)
  Receive Date: 20240415
  Receipt Date: 20240625
  Transmission Date: 20240716
  Serious: Yes (Hospitalization, Other)
  Sender: FDA-Public Use
  Company Number: JP-CHUGAI-2023040529AA

PATIENT
  Age: 75 Year
  Sex: Male
  Weight: 59.9 kg

DRUGS (31)
  1. POLIVY [Suspect]
     Active Substance: POLATUZUMAB VEDOTIN-PIIQ
     Indication: Diffuse large B-cell lymphoma stage IV
     Route: 042
     Dates: start: 20230908, end: 20230908
  2. POLIVY [Suspect]
     Active Substance: POLATUZUMAB VEDOTIN-PIIQ
     Route: 042
     Dates: start: 20231005, end: 20231005
  3. POLIVY [Suspect]
     Active Substance: POLATUZUMAB VEDOTIN-PIIQ
     Route: 042
     Dates: start: 20231201, end: 20231201
  4. POLIVY [Suspect]
     Active Substance: POLATUZUMAB VEDOTIN-PIIQ
     Route: 042
     Dates: start: 20231226, end: 20231226
  5. POLIVY [Suspect]
     Active Substance: POLATUZUMAB VEDOTIN-PIIQ
     Route: 042
     Dates: start: 20240125, end: 20240125
  6. POLIVY [Suspect]
     Active Substance: POLATUZUMAB VEDOTIN-PIIQ
     Route: 042
     Dates: start: 20240220, end: 20240220
  7. MABTHERA [Concomitant]
     Active Substance: RITUXIMAB
     Indication: Diffuse large B-cell lymphoma
     Dosage: 600 MILLIGRAM
     Route: 042
     Dates: start: 20230907, end: 20230907
  8. MABTHERA [Concomitant]
     Active Substance: RITUXIMAB
     Dosage: 600 MILLIGRAM
     Route: 042
     Dates: start: 20231004, end: 20231004
  9. MABTHERA [Concomitant]
     Active Substance: RITUXIMAB
     Dosage: 600 MILLIGRAM
     Route: 042
     Dates: start: 20231130, end: 20231130
  10. MABTHERA [Concomitant]
     Active Substance: RITUXIMAB
     Dosage: 600 MILLIGRAM
     Route: 042
     Dates: start: 20231225, end: 20231225
  11. MABTHERA [Concomitant]
     Active Substance: RITUXIMAB
     Dosage: 600 MILLIGRAM
     Route: 042
     Dates: start: 20240124, end: 20240124
  12. MABTHERA [Concomitant]
     Active Substance: RITUXIMAB
     Dosage: 600 MILLIGRAM
     Route: 042
     Dates: start: 20240219, end: 20240219
  13. CYCLOPHOSPHAMIDE [Concomitant]
     Active Substance: CYCLOPHOSPHAMIDE
     Indication: Diffuse large B-cell lymphoma stage IV
     Dosage: 1000 MILLIGRAM
     Route: 042
     Dates: start: 20230908, end: 20230908
  14. CYCLOPHOSPHAMIDE [Concomitant]
     Active Substance: CYCLOPHOSPHAMIDE
     Dosage: 1000 MILLIGRAM
     Route: 042
     Dates: start: 20231005, end: 20231005
  15. CYCLOPHOSPHAMIDE [Concomitant]
     Active Substance: CYCLOPHOSPHAMIDE
     Dosage: 1000 MILLIGRAM
     Route: 042
     Dates: start: 20231201, end: 20231201
  16. CYCLOPHOSPHAMIDE [Concomitant]
     Active Substance: CYCLOPHOSPHAMIDE
     Dosage: 1000 MILLIGRAM
     Route: 042
     Dates: start: 20231226, end: 20231226
  17. CYCLOPHOSPHAMIDE [Concomitant]
     Active Substance: CYCLOPHOSPHAMIDE
     Dosage: 1000 MILLIGRAM
     Route: 042
     Dates: start: 20240125, end: 20240125
  18. CYCLOPHOSPHAMIDE [Concomitant]
     Active Substance: CYCLOPHOSPHAMIDE
     Dosage: 1000 MILLIGRAM
     Route: 042
     Dates: start: 20240220, end: 20240220
  19. DOXORUBICIN HYDROCHLORIDE [Concomitant]
     Active Substance: DOXORUBICIN HYDROCHLORIDE
     Indication: Diffuse large B-cell lymphoma stage IV
     Dosage: 65 MILLIGRAM
     Route: 042
     Dates: start: 20230908, end: 20230908
  20. DOXORUBICIN HYDROCHLORIDE [Concomitant]
     Active Substance: DOXORUBICIN HYDROCHLORIDE
     Dosage: 65 MILLIGRAM
     Route: 042
     Dates: start: 20231005, end: 20231005
  21. DOXORUBICIN HYDROCHLORIDE [Concomitant]
     Active Substance: DOXORUBICIN HYDROCHLORIDE
     Dosage: 65 MILLIGRAM
     Route: 042
     Dates: start: 20231201, end: 20231201
  22. DOXORUBICIN HYDROCHLORIDE [Concomitant]
     Active Substance: DOXORUBICIN HYDROCHLORIDE
     Dosage: 65 MILLIGRAM
     Route: 042
     Dates: start: 20231226, end: 20231226
  23. DOXORUBICIN HYDROCHLORIDE [Concomitant]
     Active Substance: DOXORUBICIN HYDROCHLORIDE
     Dosage: 65 MILLIGRAM
     Route: 042
     Dates: start: 20240125, end: 20240125
  24. DOXORUBICIN HYDROCHLORIDE [Concomitant]
     Active Substance: DOXORUBICIN HYDROCHLORIDE
     Dosage: 65 MILLIGRAM
     Route: 042
     Dates: start: 20240220, end: 20240220
  25. PREDNISOLONE [Concomitant]
     Active Substance: PREDNISOLONE
     Indication: Diffuse large B-cell lymphoma stage IV
     Dosage: 100 MILLIGRAM, QD
     Route: 050
     Dates: start: 20230908, end: 20230912
  26. PREDNISOLONE [Concomitant]
     Active Substance: PREDNISOLONE
     Dosage: 100 MILLIGRAM, QD
     Route: 050
     Dates: start: 20231005, end: 20231009
  27. PREDNISOLONE [Concomitant]
     Active Substance: PREDNISOLONE
     Dosage: 100 MILLIGRAM, QD
     Route: 050
     Dates: start: 20231201, end: 20231205
  28. PREDNISOLONE [Concomitant]
     Active Substance: PREDNISOLONE
     Dosage: 100 MILLIGRAM, QD
     Route: 050
     Dates: start: 20231226, end: 20231230
  29. PREDNISOLONE [Concomitant]
     Active Substance: PREDNISOLONE
     Dosage: 100 MILLIGRAM, QD
     Route: 050
     Dates: start: 20240125, end: 20240129
  30. PREDNISOLONE [Concomitant]
     Active Substance: PREDNISOLONE
     Dosage: 100 MILLIGRAM, QD
     Route: 050
     Dates: start: 20240220, end: 20240224
  31. FILGRASTIM [Concomitant]
     Active Substance: FILGRASTIM
     Dosage: UNK
     Route: 042

REACTIONS (12)
  - Febrile neutropenia [Recovering/Resolving]
  - White blood cell count decreased [Recovering/Resolving]
  - Neutrophil count decreased [Recovering/Resolving]
  - Anaemia [Recovering/Resolving]
  - COVID-19 pneumonia [Unknown]
  - Osteonecrosis of jaw [Unknown]
  - Hypophagia [Unknown]
  - Extrasystoles [Unknown]
  - General physical health deterioration [Unknown]
  - Malaise [Unknown]
  - Decreased appetite [Recovering/Resolving]
  - COVID-19 [Recovering/Resolving]

NARRATIVE: CASE EVENT DATE: 20230913
